FAERS Safety Report 9312587 (Version 2)
Quarter: 2013Q3

REPORT INFORMATION
  Report Type: Report from Study
  Country: JP (occurrence: JP)
  Receive Date: 20130528
  Receipt Date: 20130817
  Transmission Date: 20140515
  Serious: Yes (Death)
  Sender: FDA-Public Use
  Company Number: JP-ROCHE-1228184

PATIENT
  Age: 76 Year
  Sex: Male
  Weight: 61 kg

DRUGS (10)
  1. METHOXY POLYETHYLENE GLYCOL-EPOETIN BETA [Suspect]
     Indication: NEPHROGENIC ANAEMIA
     Route: 042
     Dates: start: 20120221, end: 20120221
  2. METHOXY POLYETHYLENE GLYCOL-EPOETIN BETA [Suspect]
     Indication: NEPHROGENIC ANAEMIA
     Route: 042
     Dates: start: 20120321, end: 20120321
  3. METHOXY POLYETHYLENE GLYCOL-EPOETIN BETA [Suspect]
     Indication: NEPHROGENIC ANAEMIA
     Route: 042
     Dates: start: 20120417, end: 20120417
  4. CALTAN [Concomitant]
     Indication: DIABETIC NEPHROPATHY
     Route: 048
     Dates: end: 20120421
  5. MONILAC [Concomitant]
     Route: 048
     Dates: end: 20120421
  6. LASIX [Concomitant]
     Indication: DIABETIC NEPHROPATHY
     Route: 048
     Dates: end: 20120421
  7. REMITCH [Concomitant]
     Route: 048
     Dates: end: 20120421
  8. NITOROL R [Concomitant]
     Route: 048
     Dates: end: 20120421
  9. RENIVACE [Concomitant]
     Route: 048
     Dates: end: 20120321
  10. DIOVAN [Concomitant]
     Dosage: NON-DIALYSIS DAY
     Route: 048
     Dates: end: 20120421

REACTIONS (3)
  - Depressed level of consciousness [Fatal]
  - Multi-organ failure [Fatal]
  - Infection [Fatal]
